FAERS Safety Report 20190037 (Version 4)
Quarter: 2025Q1

REPORT INFORMATION
  Report Type: Spontaneous
  Country: DE (occurrence: DE)
  Receive Date: 20211215
  Receipt Date: 20250313
  Transmission Date: 20250409
  Serious: Yes (Other)
  Sender: MYLAN
  Company Number: DE-002147023-NVSC2021DE241684

PATIENT
  Age: 8 Year
  Sex: Female
  Weight: 42.7 kg

DRUGS (1)
  1. VALPROIC ACID [Suspect]
     Active Substance: VALPROIC ACID
     Indication: Product used for unknown indication
     Dosage: 1000 MILLIGRAM, QD(MATERNAL DOSE: 500 MG, BID)

REACTIONS (40)
  - Mental impairment [Not Recovered/Not Resolved]
  - Epilepsy [Unknown]
  - Dyspraxia [Not Recovered/Not Resolved]
  - Hypermetropia [Not Recovered/Not Resolved]
  - Hyperacusis [Not Recovered/Not Resolved]
  - Attention deficit hyperactivity disorder [Not Recovered/Not Resolved]
  - Developmental delay [Not Recovered/Not Resolved]
  - Insomnia [Unknown]
  - Auditory disorder [Not Recovered/Not Resolved]
  - Cognitive disorder [Not Recovered/Not Resolved]
  - Headache [Unknown]
  - Central auditory processing disorder [Not Recovered/Not Resolved]
  - Communication disorder [Recovered/Resolved]
  - Depression [Recovering/Resolving]
  - Dysarthria [Unknown]
  - Psychiatric symptom [Recovered/Resolved]
  - Restlessness [Unknown]
  - Distractibility [Not Recovered/Not Resolved]
  - Acoustic stimulation tests abnormal [Not Recovered/Not Resolved]
  - Impulse-control disorder [Unknown]
  - Learning disability [Not Recovered/Not Resolved]
  - Panic reaction [Not Recovered/Not Resolved]
  - Daydreaming [Unknown]
  - Decreased eye contact [Recovered/Resolved]
  - Balance disorder [Unknown]
  - Aggression [Unknown]
  - Foetal exposure during pregnancy [Recovered/Resolved]
  - Illogical thinking [Unknown]
  - Visual impairment [Unknown]
  - Coordination abnormal [Recovering/Resolving]
  - Pigmentation disorder [Not Recovered/Not Resolved]
  - Impaired work ability [Not Recovered/Not Resolved]
  - Disorientation [Unknown]
  - Stereotypy [Unknown]
  - Emotional disorder [Unknown]
  - Frustration tolerance decreased [Unknown]
  - Head titubation [Unknown]
  - Memory impairment [Not Recovered/Not Resolved]
  - Febrile convulsion [Unknown]
  - Abnormal behaviour [Unknown]
